FAERS Safety Report 24657907 (Version 1)
Quarter: 2024Q4

REPORT INFORMATION
  Report Type: Report from Study
  Country: TH (occurrence: TH)
  Receive Date: 20241125
  Receipt Date: 20241125
  Transmission Date: 20250114
  Serious: Yes (Other)
  Sender: NOVARTIS
  Company Number: TH-002147023-NVSC2024TH224477

PATIENT
  Sex: Female
  Weight: 60 kg

DRUGS (3)
  1. KISQALI [Suspect]
     Active Substance: RIBOCICLIB
     Indication: Breast cancer metastatic
     Dosage: 3 DOSAGE FORM, QD, AFTER BREAKFAST
     Route: 048
  2. KISQALI [Suspect]
     Active Substance: RIBOCICLIB
     Dosage: 2 DOSAGE FORM, QD
     Route: 048
  3. LETROZOLE [Suspect]
     Active Substance: LETROZOLE
     Indication: Product used for unknown indication
     Dosage: 1 DOSAGE FORM, QD, AFTER BREAKFAST
     Route: 048

REACTIONS (6)
  - Metastases to lung [Unknown]
  - Metastases to bone [Unknown]
  - Syncope [Unknown]
  - Electrocardiogram abnormal [Unknown]
  - Weight decreased [Unknown]
  - Glomerular filtration rate decreased [Unknown]
